FAERS Safety Report 10300860 (Version 2)
Quarter: 2014Q3

REPORT INFORMATION
  Report Type: Report from Study
  Country: US (occurrence: US)
  Receive Date: 20140714
  Receipt Date: 20140714
  Transmission Date: 20150326
  Serious: Yes (Other)
  Sender: FDA-Public Use
  Company Number: US-BRISTOL-MYERS SQUIBB COMPANY-21165006

PATIENT
  Age: 59 Year
  Sex: Female
  Weight: 99.77 kg

DRUGS (1)
  1. ABATACEPT SUBQ INJECTION 125MG/ML [Suspect]
     Active Substance: ABATACEPT
     Indication: RHEUMATOID ARTHRITIS
     Dosage: 1DF: 125MG/ML?LAST DOSE ON: 14JUN14.
     Route: 058

REACTIONS (4)
  - Cardiac failure congestive [Unknown]
  - Muscle spasms [Unknown]
  - Nodule [Unknown]
  - Brain neoplasm [Unknown]

NARRATIVE: CASE EVENT DATE: 20140614
